FAERS Safety Report 8175792-9 (Version None)
Quarter: 2012Q1

REPORT INFORMATION
  Report Type: 
  Country: None (occurrence: None)
  Receive Date: 20120301
  Receipt Date: 20120222
  Transmission Date: 20120608
  Serious: Yes (Other)
  Sender: FDA-Public Use
  Company Number: US-BAYER-2012-017858

PATIENT
  Age: 35 Year
  Sex: Female

DRUGS (2)
  1. MIRENA [Suspect]
     Indication: CONTRACEPTION
     Dosage: UNK
     Route: 015
     Dates: start: 20120221
  2. MIRENA [Suspect]
     Indication: MENORRHAGIA

REACTIONS (3)
  - VAGINAL HAEMORRHAGE [None]
  - ABDOMINAL PAIN [None]
  - GROIN PAIN [None]
